FAERS Safety Report 6800643-1 (Version None)
Quarter: 2010Q2

REPORT INFORMATION
  Report Type: 
  Country: None (occurrence: None)
  Receive Date: 20100629
  Receipt Date: 20100622
  Transmission Date: 20101027
  Serious: Yes (Other)
  Sender: FDA-Public Use
  Company Number: US-JNJFOC-20100406128

PATIENT
  Age: 70 Year
  Sex: Female

DRUGS (9)
  1. STELARA [Suspect]
     Indication: PSORIASIS
     Route: 058
  2. TOPAMAX [Concomitant]
  3. ZYLOPRIM [Concomitant]
  4. COREG [Concomitant]
  5. DIGOXIN [Concomitant]
  6. CYMBALTA [Concomitant]
  7. PLAVIX [Concomitant]
  8. ZETIA [Concomitant]
  9. INSULIN [Concomitant]

REACTIONS (2)
  - ACUTE MYOCARDIAL INFARCTION [None]
  - WHITE BLOOD CELL COUNT DECREASED [None]
